FAERS Safety Report 7803207 (Version 6)
Quarter: 2012Q4

REPORT INFORMATION
  Report Type: Report from Study
  Country: JP (occurrence: JP)
  Receive Date: 20110208
  Receipt Date: 20121128
  Transmission Date: 20130627
  Serious: Yes (Death, Hospitalization, Other)
  Sender: FDA-Public Use
  Company Number: JP-CELGENEUS-087-21880-10102476

PATIENT
  Age: 56 Year
  Sex: Female

DRUGS (18)
  1. LENADEX [Suspect]
     Dosage: 40 Milligram
     Route: 048
     Dates: start: 20101203, end: 20101221
  2. KADIAN [Suspect]
     Indication: ILL-DEFINED DISORDER
     Dosage: 20 Milligram
     Route: 048
     Dates: start: 20100915, end: 20101027
  3. TECIPUL [Concomitant]
     Indication: MULTIPLE MYELOMA
     Dosage: 1 Milligram
     Route: 048
     Dates: start: 20100910, end: 20101103
  4. VOLTAREN SR [Concomitant]
     Indication: MULTIPLE MYELOMA
     Dosage: 75 Milligram
     Route: 048
     Dates: start: 20100830, end: 20101020
  5. MUCOSTA [Concomitant]
     Indication: PROPHYLAXIS
     Dosage: 200 Milligram
     Route: 048
     Dates: start: 20100830, end: 20101103
  6. ATELEC [Concomitant]
     Indication: HYPERTENSION
     Dosage: 5 Milligram
     Route: 048
     Dates: start: 20101005, end: 20101014
  7. BLOPRESS [Concomitant]
     Indication: HYPERTENSION
     Dosage: 8 Milligram
     Route: 048
     Dates: start: 20101005, end: 20101014
  8. MAGLAX [Concomitant]
     Indication: DRUG USE FOR UNKNOWN INDICATION
     Dosage: 1980 Milligram
     Route: 048
     Dates: start: 20100302, end: 20101221
  9. TAKEPRON [Concomitant]
     Indication: PROPHYLAXIS
     Dosage: 15 Milligram
     Route: 048
     Dates: start: 20101014, end: 20101221
  10. ABILIFY [Concomitant]
     Indication: DRUG USE FOR UNKNOWN INDICATION
     Dosage: 3 Milligram
     Route: 048
     Dates: start: 20101020, end: 20101122
  11. CALONAL [Concomitant]
     Indication: ILL-DEFINED DISORDER
     Dosage: 400 Milligram
     Route: 048
     Dates: start: 20101023, end: 20101023
  12. INTEBAN [Concomitant]
     Indication: ILL-DEFINED DISORDER
     Dosage: 25 Gram
     Route: 041
     Dates: start: 20101109, end: 20101109
  13. REVLIMID [Suspect]
     Indication: MULTIPLE MYELOMA
     Dosage: 15 Milligram
     Route: 048
     Dates: start: 20101007, end: 20101021
  14. REVLIMID [Suspect]
     Dosage: 15 Milligram
     Route: 048
     Dates: start: 20101104, end: 20101124
  15. REVLIMID [Suspect]
     Dosage: 25 Milligram
     Route: 048
     Dates: start: 20101202, end: 20101221
  16. LENADEX [Suspect]
     Indication: MULTIPLE MYELOMA
     Dosage: 40 Milligram
     Route: 048
     Dates: start: 20101015, end: 20101018
  17. LENADEX [Suspect]
     Dosage: 40 Milligram
     Route: 048
     Dates: start: 20101023, end: 20101026
  18. LENADEX [Suspect]
     Dosage: 40 Milligram
     Route: 048
     Dates: start: 20101105, end: 20101124

REACTIONS (7)
  - Neutrophil count decreased [Fatal]
  - Sepsis [Fatal]
  - Pneumonia [Fatal]
  - Blood beta-D-glucan increased [Recovered/Resolved]
  - Pyrexia [Recovered/Resolved]
  - Haemoglobin decreased [Unknown]
  - Decreased appetite [Recovering/Resolving]
